FAERS Safety Report 4380832-9 (Version None)
Quarter: 2004Q2

REPORT INFORMATION
  Report Type: 
  Country: None (occurrence: None)
  Receive Date: 20040616
  Receipt Date: 20040608
  Transmission Date: 20050107
  Serious: Yes (Hospitalization)
  Sender: FDA-Public Use
  Company Number: 200410378BNE

PATIENT
  Age: 55 Year
  Sex: Male

DRUGS (6)
  1. ASPIRIN [Suspect]
     Indication: ANTIPLATELET THERAPY
     Dosage: 75 MG, TOTAL DAILY,  ORAL
     Route: 048
     Dates: end: 20040524
  2. LANSOPRAZOLE [Concomitant]
  3. MIRTAZAPINE [Concomitant]
  4. ATENOLOL [Concomitant]
  5. SIMVASTATIN [Concomitant]
  6. GTN [Concomitant]

REACTIONS (7)
  - CHEST PAIN [None]
  - DUODENITIS [None]
  - GASTRIC ULCER [None]
  - GASTRITIS [None]
  - HAEMOGLOBIN INCREASED [None]
  - MELAENA [None]
  - NAUSEA [None]
